FAERS Safety Report 15834326 (Version 3)
Quarter: 2019Q3

REPORT INFORMATION
  Report Type: Report from Study
  Country: DE (occurrence: DE)
  Receive Date: 20190116
  Receipt Date: 20190812
  Transmission Date: 20191004
  Serious: Yes (Death, Hospitalization)
  Sender: FDA-Public Use
  Company Number: DE-EISAI MEDICAL RESEARCH-EC-2018-049486

PATIENT
  Age: 60 Year
  Sex: Female
  Weight: 54 kg

DRUGS (2)
  1. HALAVEN [Suspect]
     Active Substance: ERIBULIN MESYLATE
     Indication: BREAST CANCER
     Route: 041
     Dates: start: 20181030, end: 20181206
  2. METOCLOPRAMID [Concomitant]
     Active Substance: METOCLOPRAMIDE

REACTIONS (6)
  - Anaemia [Recovered/Resolved]
  - Vomiting [Recovered/Resolved]
  - Thrombocytopenia [Recovered/Resolved]
  - Malignant neoplasm progression [Fatal]
  - Leukopenia [Recovered/Resolved]
  - Nausea [Recovered/Resolved]

NARRATIVE: CASE EVENT DATE: 20181031
